FAERS Safety Report 5397508-1 (Version None)
Quarter: 2007Q3

REPORT INFORMATION
  Report Type: 
  Country: None (occurrence: None)
  Receive Date: 20070726
  Receipt Date: 20070720
  Transmission Date: 20080115
  Serious: No
  Sender: FDA-Public Use
  Company Number: FR-ELI_LILLY_AND_COMPANY-FR200707005208

PATIENT
  Age: 30 Year
  Sex: Male

DRUGS (1)
  1. OLANZAPINE [Suspect]
     Indication: BIPOLAR DISORDER
     Dosage: 15 MG, DAILY (1/D)
     Route: 048
     Dates: start: 20070630

REACTIONS (1)
  - EOSINOPHILIA [None]
